FAERS Safety Report 5450679-0 (Version None)
Quarter: 2007Q3

REPORT INFORMATION
  Report Type: 
  Country: None (occurrence: None)
  Receive Date: 20070910
  Receipt Date: 20070905
  Transmission Date: 20080115
  Serious: Yes (Other)
  Sender: FDA-Public Use
  Company Number: 2007SP017792

PATIENT
  Age: 66 Year
  Sex: Female

DRUGS (2)
  1. TEMODAR [Suspect]
     Indication: BRAIN NEOPLASM MALIGNANT
     Dosage: 140 MG; PO, 150 MG; ; PO
     Route: 048
     Dates: start: 20070428, end: 20070701
  2. TEMODAR [Suspect]
     Indication: BRAIN NEOPLASM MALIGNANT
     Dosage: 140 MG; PO, 150 MG; ; PO
     Route: 048
     Dates: start: 20070702, end: 20070803

REACTIONS (1)
  - BREAST CANCER FEMALE [None]
